FAERS Safety Report 7635832-X (Version None)
Quarter: 2011Q3

REPORT INFORMATION
  Report Type: 
  Country: None (occurrence: None)
  Receive Date: 20110719
  Receipt Date: 20110711
  Transmission Date: 20111222
  Serious: Yes (Hospitalization)
  Sender: FDA-Public Use
  Company Number: 2010SP034925

PATIENT
  Age: 39 Year
  Sex: Female
  Weight: 79.3795 kg

DRUGS (1)
  1. NUVARING [Suspect]
     Indication: MENSTRUAL CYCLE MANAGEMENT
     Dates: start: 20070901, end: 20080601

REACTIONS (9)
  - INTERNATIONAL NORMALISED RATIO INCREASED [None]
  - HYPOKALAEMIA [None]
  - FIBRIN D DIMER INCREASED [None]
  - PROTHROMBIN TIME PROLONGED [None]
  - HEADACHE [None]
  - PULMONARY EMBOLISM [None]
  - CHEST PAIN [None]
  - OVARIAN CYST [None]
  - URINARY TRACT INFECTION VIRAL [None]
